FAERS Safety Report 6385979-3 (Version None)
Quarter: 2009Q4

REPORT INFORMATION
  Report Type: 
  Country: None (occurrence: None)
  Receive Date: 20091002
  Receipt Date: 20090112
  Transmission Date: 20100525
  Serious: No
  Sender: FDA-Public Use
  Company Number: US-ASTRAZENECA-2009UW01001

PATIENT
  Age: 73 Year
  Sex: Female
  Weight: 83.9 kg

DRUGS (4)
  1. ARIMIDEX [Suspect]
     Indication: BREAST CANCER FEMALE
     Dosage: 1 MG
     Route: 048
     Dates: start: 20081001
  2. ENALAPRIL MALEATE [Concomitant]
  3. LIPITOR [Concomitant]
  4. ATIVAN [Concomitant]

REACTIONS (5)
  - BONE PAIN [None]
  - INSOMNIA [None]
  - LIBIDO DECREASED [None]
  - MOOD SWINGS [None]
  - RASH PRURITIC [None]
